FAERS Safety Report 14682619 (Version 2)
Quarter: 2018Q2

REPORT INFORMATION
  Report Type: Spontaneous
  Country: DE (occurrence: DE)
  Receive Date: 20180327
  Receipt Date: 20180628
  Transmission Date: 20180711
  Serious: Yes (Hospitalization, Other)
  Sender: FDA-Public Use
  Company Number: DE-AMGEN-DEUSP2018040638

PATIENT
  Age: 68 Year
  Sex: Female

DRUGS (16)
  1. CYCLOPHOSPHAMIDE. [Suspect]
     Active Substance: CYCLOPHOSPHAMIDE
     Indication: B-CELL LYMPHOMA
  2. PREDNISOLONE. [Suspect]
     Active Substance: PREDNISOLONE
     Indication: B-CELL LYMPHOMA
  3. FILGRASTIM [Suspect]
     Active Substance: FILGRASTIM
     Dosage: 30 MIO, UNK
     Route: 058
     Dates: start: 20130905
  4. RITUXIMAB. [Suspect]
     Active Substance: RITUXIMAB
     Indication: B-CELL LYMPHOMA
     Dosage: 625 MG, Q2WK
     Route: 042
     Dates: start: 20130710
  5. VINCRISTINE [Suspect]
     Active Substance: VINCRISTINE
     Indication: T-CELL LYMPHOMA
     Dosage: 3.3 MG, 14 DAY
     Route: 042
     Dates: start: 20130716, end: 20130902
  6. PANTOPRAZOLE SODIUM. [Concomitant]
     Active Substance: PANTOPRAZOLE SODIUM
     Dosage: 40 MG, QD
     Route: 048
     Dates: start: 20130703
  7. CYCLOPHOSPHAMIDE. [Suspect]
     Active Substance: CYCLOPHOSPHAMIDE
     Indication: T-CELL LYMPHOMA
     Dosage: 1245 MG, 14 DAY
     Route: 042
     Dates: start: 20130716
  8. DOXORUBICIN [Suspect]
     Active Substance: DOXORUBICIN
     Indication: B-CELL LYMPHOMA
  9. PREDNISOLONE. [Suspect]
     Active Substance: PREDNISOLONE
     Indication: T-CELL LYMPHOMA
     Dosage: 100 MG, 14 DAY
     Route: 048
     Dates: start: 20130716
  10. LEVOTHYROXINE SODIUM. [Concomitant]
     Active Substance: LEVOTHYROXINE SODIUM
     Indication: HYPOTHYROIDISM
     Dosage: 100 MUG, QD
     Route: 048
     Dates: start: 20130101
  11. SULFAMETHOXAZOLE W/TRIMETHOPRIM [Concomitant]
     Active Substance: SULFAMETHOXAZOLE\TRIMETHOPRIM
     Dosage: 1920 MG, QD
     Route: 048
     Dates: start: 20130703
  12. DOXORUBICIN [Suspect]
     Active Substance: DOXORUBICIN
     Indication: T-CELL LYMPHOMA
     Dosage: 83 MG, 14 DAY
     Route: 042
     Dates: start: 20130716
  13. VINCRISTINE [Suspect]
     Active Substance: VINCRISTINE
     Indication: B-CELL LYMPHOMA
  14. ACICLOVIR [Concomitant]
     Active Substance: ACYCLOVIR
     Dosage: 1200 MG, QD
     Route: 048
     Dates: start: 20130713
  15. FILGRASTIM [Suspect]
     Active Substance: FILGRASTIM
     Indication: B-CELL LYMPHOMA
     Dosage: 30 MIO, FREAQUENCY 6 DAY
     Route: 058
     Dates: start: 20130719
  16. BISOPROLOL [Concomitant]
     Active Substance: BISOPROLOL
     Indication: HYPERTENSION
     Dosage: 5 MG, QD
     Route: 048
     Dates: start: 20130101

REACTIONS (3)
  - White blood cell count increased [Recovered/Resolved]
  - Peripheral motor neuropathy [Recovered/Resolved]
  - Renal failure [Unknown]

NARRATIVE: CASE EVENT DATE: 20130811
